FAERS Safety Report 7544099-2 (Version None)
Quarter: 2011Q2

REPORT INFORMATION
  Report Type: 
  Country: None (occurrence: None)
  Receive Date: 20110613
  Receipt Date: 20051206
  Transmission Date: 20111010
  Serious: Yes (Hospitalization)
  Sender: FDA-Public Use
  Company Number: PHHO2005JP19225

PATIENT
  Sex: Male
  Weight: 49 kg

DRUGS (6)
  1. PERDIPINE-LA [Concomitant]
     Dates: start: 20010702
  2. DIOVAN [Suspect]
     Indication: HYPERTENSION
     Dosage: 40 MG, QD
     Route: 048
     Dates: start: 20031020
  3. MYONAL [Concomitant]
     Dates: start: 20010702
  4. PHENYTOIN [Concomitant]
     Dates: start: 19850101
  5. PHENOBAL [Concomitant]
     Dates: start: 19850101
  6. JUVELA [Concomitant]
     Dates: start: 20010702

REACTIONS (1)
  - GASTRIC CANCER [None]
